FAERS Safety Report 18283626 (Version 3)
Quarter: 2020Q4

REPORT INFORMATION
  Report Type: Report from Study
  Country: CN (occurrence: CN)
  Receive Date: 20200918
  Receipt Date: 20201015
  Transmission Date: 20210113
  Serious: Yes (Death, Other)
  Sender: FDA-Public Use
  Company Number: CN-BRISTOL-MYERS SQUIBB COMPANY-BMS-2020-076288

PATIENT
  Age: 72 Year
  Sex: Male

DRUGS (10)
  1. DOCETAXEL. [Suspect]
     Active Substance: DOCETAXEL
     Indication: NON-SMALL CELL LUNG CANCER
     Dosage: 75 MILLIGRAM/SQ. METER (120MG D1)
     Route: 065
     Dates: start: 20200317, end: 20200317
  2. DOCETAXEL. [Suspect]
     Active Substance: DOCETAXEL
     Dosage: 75 MILLIGRAM/SQ. METER
     Route: 065
     Dates: start: 20200410, end: 20200410
  3. NIVOLUMAB [Suspect]
     Active Substance: NIVOLUMAB
     Indication: NON-SMALL CELL LUNG CANCER
     Dosage: 360 MILLIGRAM D1
     Route: 042
     Dates: start: 20200317, end: 20200317
  4. CISPLATIN. [Suspect]
     Active Substance: CISPLATIN
     Dosage: 120 MILLIGRAM/SQ. METER
     Route: 065
     Dates: start: 20200410, end: 20200410
  5. DOCETAXEL. [Suspect]
     Active Substance: DOCETAXEL
     Dosage: 39 MILLIGRAM
     Route: 065
     Dates: start: 20200520, end: 20200520
  6. CISPLATIN. [Suspect]
     Active Substance: CISPLATIN
     Dosage: 39 MILLIGRAM, WEEKLY
     Route: 065
     Dates: start: 20200513, end: 20200513
  7. CISPLATIN. [Suspect]
     Active Substance: CISPLATIN
     Indication: NON-SMALL CELL LUNG CANCER
     Dosage: 75 MILLIGRAM/SQ. METER (120MG D1)
     Route: 065
     Dates: start: 20200317, end: 20200317
  8. DOCETAXEL. [Suspect]
     Active Substance: DOCETAXEL
     Dosage: 39 MILLIGRAM, WEEKLY
     Route: 065
     Dates: start: 20200513, end: 20200513
  9. CISPLATIN. [Suspect]
     Active Substance: CISPLATIN
     Dosage: 39 MILLIGRAM
     Route: 065
     Dates: start: 20200520, end: 20200520
  10. NIVOLUMAB [Suspect]
     Active Substance: NIVOLUMAB
     Dosage: 360 MILLIGRAM
     Route: 042
     Dates: start: 20200410, end: 20200410

REACTIONS (2)
  - Cardiac failure acute [Fatal]
  - Pneumonia [Fatal]

NARRATIVE: CASE EVENT DATE: 20200910
